FAERS Safety Report 12807958 (Version 2)
Quarter: 2016Q4

REPORT INFORMATION
  Report Type: Report from Study
  Country: JP (occurrence: JP)
  Receive Date: 20161004
  Receipt Date: 20161007
  Transmission Date: 20170207
  Serious: Yes (Death, Hospitalization)
  Sender: FDA-Public Use
  Company Number: JP-PFIZER INC-2016030488

PATIENT
  Age: 69 Year
  Sex: Male
  Weight: 68 kg

DRUGS (72)
  1. DAUNORUBICIN HCL [Suspect]
     Active Substance: DAUNORUBICIN HYDROCHLORIDE
     Dosage: 107 MG, ONCE DAILY, CYCLIC
     Route: 042
     Dates: start: 20151207, end: 20151209
  2. VANCOMYCIN [Suspect]
     Active Substance: VANCOMYCIN
     Indication: PYREXIA
     Dosage: UNK
     Route: 042
     Dates: start: 20151109, end: 20151111
  3. MEROPEN /01250501/ [Concomitant]
     Active Substance: MEROPENEM
     Indication: PNEUMONIA BACTERIAL
     Dosage: UNK
     Dates: start: 20151230, end: 20160106
  4. KCL CORRECTIVE [Concomitant]
     Dosage: UNK
     Dates: start: 20160124, end: 20160125
  5. VITAJECT [Concomitant]
     Active Substance: CYANOCOBALAMIN\PYRIDOXAMINE HYDROCHLORIDE\THIAMINE HYDROCHLORIDE
     Indication: HYPOPHAGIA
     Dosage: UNK
     Dates: start: 20160120, end: 20160125
  6. GOODMIN [Concomitant]
     Active Substance: BROTIZOLAM
     Indication: INSOMNIA
     Dosage: UNK
     Dates: start: 20160125, end: 20160209
  7. CYTARABINE. [Suspect]
     Active Substance: CYTARABINE
     Indication: ACUTE MYELOID LEUKAEMIA
     Dosage: 186 MG, ONCE DAILY DAY 1-7 CYCLIC
     Route: 042
     Dates: start: 20151102, end: 20151108
  8. FUNGUARD [Concomitant]
     Active Substance: MICAFUNGIN SODIUM
     Dosage: UNK
     Dates: start: 20151111, end: 20151120
  9. ZOSYN [Concomitant]
     Active Substance: PIPERACILLIN SODIUM\TAZOBACTAM SODIUM
     Dosage: UNK
     Dates: start: 20151117
  10. ELNEOPA NO.2 [Concomitant]
     Active Substance: AMINO ACIDS\CARBOHYDRATES\ELECTROLYTES NOS\VITAMINS
     Dosage: UNK
     Dates: start: 20160126, end: 20160216
  11. PRIMPERAN [Concomitant]
     Active Substance: METOCLOPRAMIDE HYDROCHLORIDE
     Indication: NAUSEA
     Dosage: UNK
     Dates: start: 20160117, end: 20160118
  12. MAGNESIUM SULFATE. [Concomitant]
     Active Substance: MAGNESIUM SULFATE
     Dosage: UNK
     Dates: start: 20160130, end: 20160201
  13. VFEND [Concomitant]
     Active Substance: VORICONAZOLE
     Indication: PYREXIA
     Dosage: UNK
     Dates: start: 20160120, end: 20160202
  14. LOBU [Concomitant]
     Active Substance: LOBUCAVIR
     Indication: CATHETER SITE PAIN
     Dosage: UNK
     Dates: start: 20160125, end: 20160125
  15. VEEN D [Concomitant]
     Active Substance: CALCIUM CHLORIDE\DEXTROSE\POTASSIUM CHLORIDE\SODIUM ACETATE\SODIUM CHLORIDE
     Indication: HYPOPHAGIA
     Dosage: UNK
     Dates: start: 20151215, end: 20160108
  16. SOLDEM 3A [Concomitant]
     Active Substance: CARBOHYDRATES\POTASSIUM CHLORIDE\SODIUM CHLORIDE\SODIUM LACTATE
     Indication: HYPOPHAGIA
     Dosage: UNK
     Dates: start: 20160119, end: 20160129
  17. PF-04449913 [Suspect]
     Active Substance: GLASDEGIB
     Indication: ACUTE MYELOID LEUKAEMIA
     Dosage: 100 MG, ONCE DAILY CONTINUOUS 28-DAY CYCLES
     Route: 048
     Dates: start: 20151030, end: 20160118
  18. ZOSYN [Concomitant]
     Active Substance: PIPERACILLIN SODIUM\TAZOBACTAM SODIUM
     Indication: PYREXIA
     Dosage: UNK
     Dates: start: 20151021, end: 20151031
  19. AZUNOL /00317302/ [Concomitant]
     Indication: INFECTION PROPHYLAXIS
     Dosage: UNK
     Dates: start: 20151029, end: 20160216
  20. CANCIDAS [Concomitant]
     Active Substance: CASPOFUNGIN ACETATE
     Dosage: UNK
     Dates: start: 20160119, end: 20160120
  21. 50% GLUCOSE [Concomitant]
     Indication: HYPOPHAGIA
     Dosage: UNK
     Dates: start: 20160120, end: 20160125
  22. STRONGER NEO MINOPHAGEN C [Concomitant]
     Indication: HEPATIC FUNCTION ABNORMAL
     Dosage: UNK
     Dates: start: 20151202
  23. STRONGER NEO MINOPHAGEN C [Concomitant]
     Dosage: UNK
     Dates: start: 20160122, end: 20160215
  24. ROPION [Concomitant]
     Active Substance: FLURBIPROFEN AXETIL
     Indication: CATHETER SITE PAIN
     Dosage: UNK
     Dates: start: 20160202, end: 20160202
  25. PICOSULFATE [Concomitant]
     Active Substance: SODIUM PICOSULFATE
     Indication: CONSTIPATION
     Dosage: UNK
     Dates: start: 20160130, end: 20160203
  26. CYTARABINE. [Suspect]
     Active Substance: CYTARABINE
     Dosage: 178 MG, ONCE DAILY CYCLIC
     Route: 042
     Dates: start: 20151207, end: 20151213
  27. FUNGUARD [Concomitant]
     Active Substance: MICAFUNGIN SODIUM
     Indication: PYREXIA
     Dosage: UNK
     Dates: start: 20151021, end: 20151024
  28. BFLUID [Concomitant]
     Active Substance: AMINO ACIDS\DEXTROSE\ELECTROLYTES NOS\VITAMINS
     Indication: PARENTERAL NUTRITION
     Dosage: UNK
     Dates: start: 20160117, end: 20160119
  29. LASIX [Concomitant]
     Active Substance: FUROSEMIDE
     Indication: CARDIOVASCULAR EVENT PROPHYLAXIS
     Dosage: UNK
     Dates: start: 20160117, end: 20160118
  30. SODIUM CHLORIDE. [Concomitant]
     Active Substance: SODIUM CHLORIDE
     Indication: HYPOPHAGIA
     Dosage: UNK
     Dates: start: 20160120, end: 20160216
  31. CRAVIT [Concomitant]
     Active Substance: LEVOFLOXACIN
     Dosage: UNK
     Dates: start: 20160124
  32. VANCOMYCIN [Suspect]
     Active Substance: VANCOMYCIN
     Dosage: 0.5 G, 2X/DAY
     Route: 042
     Dates: start: 20160114, end: 20160118
  33. FUNGUARD [Concomitant]
     Active Substance: MICAFUNGIN SODIUM
     Dosage: UNK
     Dates: start: 20160111, end: 20160118
  34. INTRALIPOS [Concomitant]
     Active Substance: SOYBEAN OIL
     Indication: PARENTERAL NUTRITION
     Dosage: UNK
     Dates: start: 20160116, end: 20160116
  35. LASIX [Concomitant]
     Active Substance: FUROSEMIDE
     Dosage: UNK
     Dates: start: 20160126, end: 20160126
  36. NEXIUM [Concomitant]
     Active Substance: ESOMEPRAZOLE MAGNESIUM
     Indication: PROPHYLAXIS AGAINST GASTROINTESTINAL ULCER
     Dosage: UNK
     Dates: start: 20151021, end: 20160118
  37. NEXIUM [Concomitant]
     Active Substance: ESOMEPRAZOLE MAGNESIUM
     Dosage: UNK
     Dates: start: 20160124, end: 20160211
  38. CANCIDAS [Concomitant]
     Active Substance: CASPOFUNGIN ACETATE
     Dosage: UNK
     Dates: start: 20151127
  39. TAKEPRON [Concomitant]
     Active Substance: LANSOPRAZOLE
     Indication: PROPHYLAXIS AGAINST GASTROINTESTINAL ULCER
     Dosage: UNK
     Dates: start: 20160119, end: 20160123
  40. PERDIPINE [Concomitant]
     Active Substance: NICARDIPINE HYDROCHLORIDE
     Indication: HYPERTENSION
     Dosage: UNK
     Dates: start: 20160119, end: 20160119
  41. ELEMENMIC [Concomitant]
     Active Substance: CUPRIC SULFATE\FERRIC CHLORIDE\MANGANESE CHLORIDE\POTASSIUM IODIDE\ZINC SULFATE
     Indication: HYPOPHAGIA
     Dosage: UNK
     Dates: start: 20160120, end: 20160125
  42. MAGNESIUM SULFATE. [Concomitant]
     Active Substance: MAGNESIUM SULFATE
     Indication: HYPOPHAGIA
     Dosage: UNK
     Dates: start: 20160120, end: 20160125
  43. LOBU [Concomitant]
     Active Substance: LOBUCAVIR
     Indication: PYREXIA
     Dosage: UNK
     Dates: start: 20151020, end: 20160118
  44. ZITHROMAC [Concomitant]
     Active Substance: AZITHROMYCIN DIHYDRATE
     Indication: PNEUMONIA BACTERIAL
     Dosage: UNK
     Dates: start: 20160119, end: 20160124
  45. VEEN D [Concomitant]
     Active Substance: CALCIUM CHLORIDE\DEXTROSE\POTASSIUM CHLORIDE\SODIUM ACETATE\SODIUM CHLORIDE
     Dosage: UNK
     Dates: start: 20160111, end: 20160117
  46. DAUNORUBICIN HCL [Suspect]
     Active Substance: DAUNORUBICIN HYDROCHLORIDE
     Indication: ACUTE MYELOID LEUKAEMIA
     Dosage: 112 MG, DAY 1-3 OF 28-DAY CYCLE
     Route: 042
     Dates: start: 20151102, end: 20151104
  47. ZOSYN [Concomitant]
     Active Substance: PIPERACILLIN SODIUM\TAZOBACTAM SODIUM
     Dosage: UNK
     Dates: start: 20160112, end: 20160117
  48. ELNEOPA NO.2 [Concomitant]
     Active Substance: AMINO ACIDS\CARBOHYDRATES\ELECTROLYTES NOS\VITAMINS
     Indication: PARENTERAL NUTRITION
     Dosage: UNK
     Dates: start: 20151218, end: 20160108
  49. BFLUID [Concomitant]
     Active Substance: AMINO ACIDS\DEXTROSE\ELECTROLYTES NOS\VITAMINS
     Dosage: UNK
     Dates: start: 20160203, end: 20160208
  50. REBAMIPIDE [Concomitant]
     Active Substance: REBAMIPIDE
     Indication: PROPHYLAXIS AGAINST GASTROINTESTINAL ULCER
     Dosage: UNK
     Dates: start: 20151021, end: 20160118
  51. CANCIDAS [Concomitant]
     Active Substance: CASPOFUNGIN ACETATE
     Indication: PYREXIA
     Dosage: UNK
     Dates: start: 20151024, end: 2015
  52. CANCIDAS [Concomitant]
     Active Substance: CASPOFUNGIN ACETATE
     Dosage: UNK
     Dates: start: 20160202, end: 20160215
  53. MAGMITT [Concomitant]
     Active Substance: MAGNESIUM OXIDE
     Indication: CONSTIPATION
     Dosage: UNK
     Dates: start: 20160122, end: 20160122
  54. ASPARA POTASSIUM [Concomitant]
     Active Substance: POTASSIUM ASPARTATE
     Indication: BLOOD POTASSIUM DECREASED
     Dosage: UNK
     Dates: start: 20160123, end: 20160129
  55. VANCOMYCIN [Suspect]
     Active Substance: VANCOMYCIN
     Dosage: UNK
     Route: 042
     Dates: start: 20151127
  56. ELNEOPA NO.1 [Concomitant]
     Indication: PARENTERAL NUTRITION
     Dosage: UNK
     Dates: start: 20160116, end: 20160116
  57. MEROPEN /01250501/ [Concomitant]
     Active Substance: MEROPENEM
     Indication: FEBRILE NEUTROPENIA
     Dosage: UNK
     Dates: start: 20160117, end: 20160124
  58. POLYMYXIN B SULFATE. [Concomitant]
     Active Substance: POLYMYXIN B SULFATE
     Indication: INFECTION PROPHYLAXIS
     Dosage: UNK
     Dates: start: 20151021, end: 20160118
  59. BAKTAR [Concomitant]
     Active Substance: SULFAMETHOXAZOLE\TRIMETHOPRIM
     Indication: INFECTION PROPHYLAXIS
     Dosage: UNK
     Dates: start: 20151022, end: 20160118
  60. ZOLPIDEM TARTRATE. [Concomitant]
     Active Substance: ZOLPIDEM TARTRATE
     Indication: INSOMNIA
     Dosage: UNK
     Dates: start: 20151023, end: 20160124
  61. ZYVOX [Concomitant]
     Active Substance: LINEZOLID
     Indication: PYREXIA
     Dosage: UNK
     Dates: start: 20160118, end: 20160125
  62. NEOAMIYU [Concomitant]
     Active Substance: AMINO ACIDS
     Indication: HYPOPHAGIA
     Dosage: UNK
     Dates: start: 20160120, end: 20160125
  63. PRECEDEX [Concomitant]
     Active Substance: DEXMEDETOMIDINE HYDROCHLORIDE
     Indication: SEDATION
     Dosage: UNK
     Dates: start: 20160120, end: 20160128
  64. VEEN D [Concomitant]
     Active Substance: CALCIUM CHLORIDE\DEXTROSE\POTASSIUM CHLORIDE\SODIUM ACETATE\SODIUM CHLORIDE
     Dosage: UNK
     Dates: start: 20160119, end: 20160119
  65. ZOSYN [Concomitant]
     Active Substance: PIPERACILLIN SODIUM\TAZOBACTAM SODIUM
     Dosage: UNK
     Dates: start: 20160211, end: 20160215
  66. MEROPEN /01250501/ [Concomitant]
     Active Substance: MEROPENEM
     Indication: PYREXIA
     Dosage: UNK
     Dates: start: 20151031, end: 20151111
  67. LASIX [Concomitant]
     Active Substance: FUROSEMIDE
     Dosage: UNK
     Dates: start: 20160122, end: 20160124
  68. FEBURIC [Concomitant]
     Active Substance: FEBUXOSTAT
     Indication: PROPHYLAXIS
     Dosage: UNK
     Dates: start: 20151023, end: 20160118
  69. CEFCAPENE PIVOXIL HYDROCHLORIDE [Concomitant]
     Active Substance: CEFCAPENE PIVOXIL HYDROCHLORIDE
     Indication: INFECTION PROPHYLAXIS
     Dosage: UNK
     Dates: start: 20160108, end: 20160111
  70. KCL CORRECTIVE [Concomitant]
     Indication: BLOOD POTASSIUM DECREASED
     Dosage: UNK
     Route: 042
     Dates: start: 20160119, end: 20160121
  71. HYDROXYZINE PAMOATE(ATARAX P) [Concomitant]
     Indication: INSOMNIA
     Dosage: UNK
     Dates: start: 20160120, end: 20160120
  72. DERMOVATE [Concomitant]
     Active Substance: CLOBETASOL
     Indication: DRUG ERUPTION
     Dosage: UNK
     Dates: start: 20160119, end: 20160125

REACTIONS (5)
  - Interstitial lung disease [Fatal]
  - Pneumonia cytomegaloviral [Fatal]
  - Pneumothorax [Not Recovered/Not Resolved]
  - Pneumonia bacterial [Not Recovered/Not Resolved]
  - Disseminated intravascular coagulation [Recovered/Resolved]

NARRATIVE: CASE EVENT DATE: 20160118
